FAERS Safety Report 8460325-X (Version None)
Quarter: 2012Q2

REPORT INFORMATION
  Report Type: 
  Country: None (occurrence: None)
  Receive Date: 20120622
  Receipt Date: 20120529
  Transmission Date: 20120825
  Serious: Yes (Hospitalization)
  Sender: FDA-Public Use
  Company Number: IT-PFIZER INC-2012129733

PATIENT
  Age: 93 Year
  Sex: Female

DRUGS (7)
  1. NORVASC [Suspect]
     Indication: HYPERTENSION
     Dosage: 1 DF, DAILY
     Route: 048
     Dates: start: 20090101
  2. BISOPROLOL FUMARATE [Suspect]
     Indication: HYPERTENSION
     Dosage: 1.25 MG, DAILY
     Route: 048
     Dates: start: 20120101
  3. RAMIPRIL [Suspect]
     Indication: HYPERTENSION
     Dosage: 5 MG, DAILY
     Route: 048
     Dates: start: 20110101
  4. ASPIRIN [Concomitant]
     Dosage: UNK
  5. CATAPRES-TTS-1 [Suspect]
     Indication: HYPERTENSION
     Dosage: 1 DF, WEEKLY
     Route: 062
     Dates: start: 20120101, end: 20120201
  6. FOLINA [Concomitant]
     Dosage: UNK
  7. LORAZEPAM [Concomitant]
     Dosage: UNK

REACTIONS (4)
  - FALL [None]
  - SUBDURAL HAEMATOMA [None]
  - ORTHOSTATIC HYPOTENSION [None]
  - DROP ATTACKS [None]
